FAERS Safety Report 12091948 (Version 1)
Quarter: 2016Q1

REPORT INFORMATION
  Report Type: Spontaneous
  Country: US (occurrence: US)
  Receive Date: 20160219
  Receipt Date: 20160219
  Transmission Date: 20160526
  Serious: No
  Sender: FDA-Public Use
  Company Number: US-ASTRAZENECA-2016SE14894

PATIENT
  Sex: Female
  Weight: 40.4 kg

DRUGS (2)
  1. PROAIR HFA [Concomitant]
     Active Substance: ALBUTEROL SULFATE
     Indication: ASTHMA
     Route: 055
  2. SYMBICORT [Suspect]
     Active Substance: BUDESONIDE\FORMOTEROL FUMARATE DIHYDRATE
     Indication: ASTHMA
     Dosage: 80/4.5 MCG, AT NIGHT
     Route: 055
     Dates: start: 20160208

REACTIONS (5)
  - Vomiting [Unknown]
  - Fatigue [Unknown]
  - Off label use [Unknown]
  - Asthenia [Unknown]
  - Headache [Unknown]
